FAERS Safety Report 6473819-3 (Version None)
Quarter: 2009Q4

REPORT INFORMATION
  Report Type: 
  Country: None (occurrence: None)
  Receive Date: 20091130
  Receipt Date: 20091118
  Transmission Date: 20100525
  Serious: Yes (Other)
  Sender: FDA-Public Use
  Company Number: 2009S1000388-001

PATIENT
  Age: 68 Year
  Sex: Female

DRUGS (5)
  1. PITAVASTATIN CALCIUM [Suspect]
     Indication: HYPERLIPIDAEMIA
     Dosage: 1MG PO
     Route: 048
     Dates: start: 20090629, end: 20091118
  2. OLMESARTAN MEDOXOMIL [Suspect]
     Indication: HYPERTENSION
     Dosage: 10MG PO
     Route: 048
     Dates: start: 20070717
  3. AZELNIDIPINE [Suspect]
     Indication: HYPERTENSION
     Dosage: 16MG PO
     Route: 048
     Dates: start: 20070717
  4. ACETYLSALICYLIC ACID [Concomitant]
  5. MECOBALAMIN [Concomitant]

REACTIONS (1)
  - WHITE BLOOD CELL COUNT DECREASED [None]
